FAERS Safety Report 4373569-3 (Version None)
Quarter: 2004Q1

REPORT INFORMATION
  Report Type: 
  Country: None (occurrence: None)
  Receive Date: 20040305
  Receipt Date: 20040129
  Transmission Date: 20041129
  Serious: Yes (Other)
  Sender: FDA-Public Use
  Company Number: 2004UW01544

PATIENT
  Age: 59 Year
  Sex: Male
  Weight: 87.5442 kg

DRUGS (11)
  1. CRESTOR [Suspect]
     Indication: HYPERTRIGLYCERIDAEMIA
     Dosage: 10 MG QD PO
     Route: 048
  2. COUMADIN [Concomitant]
  3. PREVACID [Concomitant]
  4. VITAMIN E [Concomitant]
  5. FISH OIL [Concomitant]
  6. ALLOPURINOL [Concomitant]
  7. DEMADEX [Concomitant]
  8. CLONIDINE HCL [Concomitant]
  9. TOPROL-XL [Concomitant]
  10. SINGULAIR [Concomitant]
  11. ZYRTEC [Concomitant]

REACTIONS (1)
  - DYSPEPSIA [None]
